FAERS Safety Report 17524645 (Version 1)
Quarter: 2020Q1

REPORT INFORMATION
  Report Type: Spontaneous
  Country: GB (occurrence: GB)
  Receive Date: 20200310
  Receipt Date: 20200310
  Transmission Date: 20200409
  Serious: Yes (Hospitalization)
  Sender: FDA-Public Use
  Company Number: GB-MYLANLABS-2020M1025357

PATIENT
  Age: 72 Year
  Sex: Male

DRUGS (2)
  1. OMEPRAZOLE. [Concomitant]
     Active Substance: OMEPRAZOLE
     Dosage: 20 MILLIGRAM, QD
     Route: 048
  2. NABUMETONE. [Suspect]
     Active Substance: NABUMETONE
     Indication: JOINT INJURY
     Dosage: 2 GRAM, QD
     Route: 048
     Dates: start: 2013

REACTIONS (2)
  - Acute myocardial infarction [Recovered/Resolved]
  - Chest pain [Unknown]

NARRATIVE: CASE EVENT DATE: 20200109
